FAERS Safety Report 11196685 (Version 1)
Quarter: 2015Q2

REPORT INFORMATION
  Report Type: Spontaneous
  Country: US (occurrence: None)
  Receive Date: 20150616
  Receipt Date: 20150616
  Transmission Date: 20150821
  Serious: Yes (Disabling)
  Sender: FDA-Public Use
  Company Number: None

PATIENT
  Age: 59 Year
  Sex: Female
  Weight: 54.43 kg

DRUGS (5)
  1. ALDARA [Suspect]
     Active Substance: IMIQUIMOD
     Indication: SKIN CANCER
     Dosage: CREAM ONCE A DAY, APPLIED TO A SURFACE. USUALLY THE SKIN
     Route: 061
     Dates: start: 20140827, end: 20140830
  2. MAGNESIUM [Concomitant]
     Active Substance: MAGNESIUM
  3. ALDARA [Suspect]
     Active Substance: IMIQUIMOD
     Indication: BASAL CELL CARCINOMA
     Dosage: CREAM ONCE A DAY, APPLIED TO A SURFACE. USUALLY THE SKIN
     Route: 061
     Dates: start: 20140827, end: 20140830
  4. CYMBALTA [Concomitant]
     Active Substance: DULOXETINE HYDROCHLORIDE
  5. MULTI VITAMINS [Concomitant]

REACTIONS (2)
  - Vision blurred [None]
  - Visual impairment [None]

NARRATIVE: CASE EVENT DATE: 20150114
